FAERS Safety Report 7565173-0 (Version None)
Quarter: 2011Q2

REPORT INFORMATION
  Report Type: 
  Country: None (occurrence: None)
  Receive Date: 20110622
  Receipt Date: 20110429
  Transmission Date: 20111010
  Serious: Yes (Other)
  Sender: FDA-Public Use
  Company Number: US-MYLANLABS-2011S1008597

PATIENT
  Age: 47 Year
  Sex: Male

DRUGS (7)
  1. CLOZAPINE [Suspect]
     Dates: start: 20110401
  2. DEPAKOTE [Suspect]
     Indication: PSYCHOTIC DISORDER
     Dates: start: 20110401
  3. CLOZAPINE [Suspect]
     Indication: PSYCHOTIC DISORDER
     Route: 048
     Dates: start: 20090101, end: 20111108
  4. RISPERDAL [Concomitant]
  5. MELOXICAM [Concomitant]
  6. CLOZAPINE [Suspect]
     Dates: start: 20111108, end: 20110401
  7. FOLIC ACID [Concomitant]

REACTIONS (2)
  - DRUG EFFECT DECREASED [None]
  - PSYCHOTIC DISORDER [None]
